FAERS Safety Report 6917543-9 (Version None)
Quarter: 2010Q3

REPORT INFORMATION
  Report Type: 
  Country: None (occurrence: None)
  Receive Date: 20100806
  Receipt Date: 20100722
  Transmission Date: 20110219
  Serious: Yes (Life-Threatening, Hospitalization, Other)
  Sender: FDA-Public Use
  Company Number: ACO_01607_2010

PATIENT
  Sex: Female

DRUGS (11)
  1. SIRDALUD (SIRDALUD - TIZANIDINE HYDROCHLORIDE) 2 MG (NOT SPECIFIED) [Suspect]
     Indication: PAIN
     Dosage: (2 MG, DAILY ORAL)
     Route: 048
     Dates: start: 20100627
  2. TEGRETOL [Suspect]
     Indication: EPILEPSY
     Dosage: (400 MG BID ORAL)
     Route: 048
     Dates: start: 20100627
  3. NOVALGIN /06276704/ (NOVALGIN  METAMIZOLE SODIUM MONOHYDRATE) (NOT SPE [Suspect]
     Indication: PAIN
     Dosage: (500 MG TID)
     Dates: start: 20100506, end: 20100627
  4. IRFEN [Concomitant]
  5. ACETAMINOPHEN [Concomitant]
  6. COMILORIDE [Concomitant]
  7. LASIX [Concomitant]
  8. LYRICA [Concomitant]
  9. OMEPRAZOLE [Concomitant]
  10. MADOPAR [Concomitant]
  11. SIMCORA [Concomitant]

REACTIONS (11)
  - AGRANULOCYTOSIS [None]
  - APHTHOUS STOMATITIS [None]
  - CLOSTRIDIUM BACTERAEMIA [None]
  - COGNITIVE DISORDER [None]
  - CONFUSIONAL STATE [None]
  - DRUG DEPENDENCE [None]
  - GENERAL PHYSICAL HEALTH DETERIORATION [None]
  - HERPES SIMPLEX [None]
  - HYPERCHOLESTEROLAEMIA [None]
  - HYPERTENSION [None]
  - LEUKOPENIA [None]
